FAERS Safety Report 5070551-8 (Version None)
Quarter: 2006Q3

REPORT INFORMATION
  Report Type: 
  Country: None (occurrence: None)
  Receive Date: 20060714
  Receipt Date: 20060420
  Transmission Date: 20061208
  Serious: No
  Sender: FDA-Public Use
  Company Number: 2006SP001773

PATIENT
  Age: 38 Year
  Sex: Female
  Weight: 54.4316 kg

DRUGS (7)
  1. LUNESTA [Suspect]
     Indication: INSOMNIA
     Dosage: 3 MG;ORAL
     Route: 048
     Dates: start: 20060317
  2. AMBIEN [Concomitant]
  3. LAMOTRIGINE [Concomitant]
  4. WELLBUTRIN [Concomitant]
  5. OXCARBAZEPINE [Concomitant]
  6. GEODON [Concomitant]
  7. ATIVAN [Concomitant]

REACTIONS (1)
  - NAUSEA [None]
